FAERS Safety Report 10771080 (Version 1)
Quarter: 2015Q1

REPORT INFORMATION
  Report Type: Spontaneous
  Country: US (occurrence: US)
  Receive Date: 20150206
  Receipt Date: 20150206
  Transmission Date: 20150721
  Serious: No
  Sender: FDA-Public Use
  Company Number: US-GLAXOSMITHKLINE-US2014GSK049282

PATIENT
  Sex: Female

DRUGS (9)
  1. METFORMIN [Concomitant]
     Active Substance: METFORMIN HYDROCHLORIDE
  2. LANTUS [Concomitant]
     Active Substance: INSULIN GLARGINE
  3. VOTRIENT [Suspect]
     Active Substance: PAZOPANIB HYDROCHLORIDE
     Indication: OVARIAN CANCER
     Dosage: 800 MG, QD
     Route: 065
     Dates: start: 20141122
  4. SIMVASTATIN. [Concomitant]
     Active Substance: SIMVASTATIN
  5. COQ10 [Concomitant]
     Active Substance: UBIDECARENONE
  6. MULTIVITAMIN [Concomitant]
     Active Substance: VITAMINS
  7. HYDROCODONE [Concomitant]
     Active Substance: HYDROCODONE
  8. MAGNESIUM [Concomitant]
     Active Substance: MAGNESIUM
  9. LEVOTHYROXINE [Concomitant]
     Active Substance: LEVOTHYROXINE

REACTIONS (2)
  - Fatigue [Unknown]
  - Adverse drug reaction [Unknown]
